FAERS Safety Report 24545104 (Version 1)
Quarter: 2024Q4

REPORT INFORMATION
  Report Type: Spontaneous
  Country: JP (occurrence: JP)
  Receive Date: 20241024
  Receipt Date: 20241024
  Transmission Date: 20250115
  Serious: Yes (Death, Hospitalization, Other)
  Sender: DAIICHI
  Company Number: JP-DSJP-DSJ-2023-143109

PATIENT
  Age: 65 Year
  Sex: Female

DRUGS (2)
  1. DENOSUMAB [Suspect]
     Active Substance: DENOSUMAB
     Indication: Metastases to bone
     Dosage: 120 MG, ONCE EVERY 4 WK, 25 TIMES IN TOTAL
     Route: 058
     Dates: start: 20210917, end: 20221202
  2. ENHERTU [Suspect]
     Active Substance: FAM-TRASTUZUMAB DERUXTECAN-NXKI
     Indication: HER2 positive breast cancer
     Dosage: 5.4 MG/KG, ONCE EVERY 3 WK
     Route: 041

REACTIONS (7)
  - Osteonecrosis of jaw [Recovering/Resolving]
  - Disease progression [Fatal]
  - Gas gangrene [Unknown]
  - Mediastinitis [Unknown]
  - Trismus [Unknown]
  - Osteomyelitis [Unknown]
  - Fall [Unknown]

NARRATIVE: CASE EVENT DATE: 20221202
